FAERS Safety Report 14321004 (Version 1)
Quarter: 2017Q4

REPORT INFORMATION
  Report Type: Spontaneous
  Country: US (occurrence: US)
  Receive Date: 20171223
  Receipt Date: 20171223
  Transmission Date: 20180321
  Serious: Yes (Other)
  Sender: FDA-Public Use
  Company Number: US-CIPLA LTD.-2017US24481

PATIENT

DRUGS (1)
  1. GABAPENTIN. [Suspect]
     Active Substance: GABAPENTIN
     Indication: NEURALGIA
     Dosage: 900 MG/DAY
     Route: 065

REACTIONS (4)
  - Fatigue [Recovered/Resolved]
  - Toxicity to various agents [Unknown]
  - Myalgia [Recovered/Resolved]
  - Dysarthria [Recovered/Resolved]
